FAERS Safety Report 24746607 (Version 2)
Quarter: 2024Q4

REPORT INFORMATION
  Report Type: Spontaneous
  Country: CA (occurrence: CA)
  Receive Date: 20241218
  Receipt Date: 20241223
  Transmission Date: 20250115
  Serious: Yes (Other)
  Sender: CELLTRION
  Company Number: CA-CELLTRION INC.-2024CA031905

PATIENT

DRUGS (4)
  1. INFLIXIMAB [Suspect]
     Active Substance: INFLIXIMAB
     Indication: Colitis ulcerative
     Dosage: 120 MG, EVERY 14 DAYS
     Route: 058
     Dates: start: 2024
  2. INFLIXIMAB [Suspect]
     Active Substance: INFLIXIMAB
     Dosage: 240MG EVERY 14 DAYS
     Route: 058
  3. PENTASA [Concomitant]
     Active Substance: MESALAMINE
     Indication: Product used for unknown indication
     Dosage: 2MG ONCE A DAY
     Route: 065
  4. SERTRALINE [Concomitant]
     Active Substance: SERTRALINE HYDROCHLORIDE
     Indication: Product used for unknown indication
     Dosage: 25MG ONCE A DAY
     Route: 065

REACTIONS (9)
  - Haematochezia [Unknown]
  - Mucous stools [Unknown]
  - Anal incontinence [Unknown]
  - Frequent bowel movements [Unknown]
  - Arthralgia [Unknown]
  - Psoriasis [Unknown]
  - Weight decreased [Unknown]
  - Drug ineffective [Unknown]
  - Intentional product use issue [Unknown]
